FAERS Safety Report 6297562-9 (Version None)
Quarter: 2009Q3

REPORT INFORMATION
  Report Type: 
  Country: None (occurrence: None)
  Receive Date: 20090805
  Receipt Date: 20090727
  Transmission Date: 20100115
  Serious: Yes (Other)
  Sender: FDA-Public Use
  Company Number: US-ASTRAZENECA-2009SE06063

PATIENT
  Age: 49 Year
  Sex: Female
  Weight: 69.8 kg

DRUGS (6)
  1. NOLVADEX [Suspect]
     Indication: BREAST CANCER
     Route: 048
     Dates: start: 20040101
  2. NOLVADEX [Suspect]
     Route: 048
     Dates: start: 20090501, end: 20090601
  3. CHANTIX [Suspect]
     Indication: EX-TOBACCO USER
     Route: 048
     Dates: start: 20090404
  4. BUPROPION HCL [Concomitant]
  5. ESCITALOPRAM [Concomitant]
  6. CLONAZEPAM [Concomitant]
     Indication: SLEEP DISORDER
     Dosage: 1MG TO 2MG

REACTIONS (7)
  - BLOOD PRESSURE INCREASED [None]
  - BRADYCARDIA [None]
  - DIZZINESS [None]
  - FALL [None]
  - HYPOTENSION [None]
  - PAIN IN EXTREMITY [None]
  - SPEECH DISORDER [None]
